FAERS Safety Report 15812993 (Version 1)
Quarter: 2019Q1

REPORT INFORMATION
  Report Type: Spontaneous
  Country: ES (occurrence: ES)
  Receive Date: 20190111
  Receipt Date: 20190111
  Transmission Date: 20190417
  Serious: Yes (Life-Threatening, Other)
  Sender: FDA-Public Use
  Company Number: ES-AMGEN-ESPSP2019003570

PATIENT
  Age: 56 Year
  Sex: Female

DRUGS (4)
  1. PROLIA [Suspect]
     Active Substance: DENOSUMAB
     Indication: OSTEOPOROSIS
     Dosage: UNK UNK, Q6MO
     Route: 030
     Dates: start: 20181213, end: 20181213
  2. BROMAZEPAN [Concomitant]
     Active Substance: BROMAZEPAM
     Dosage: UNK
  3. ETORICOXIB. [Concomitant]
     Active Substance: ETORICOXIB
     Dosage: UNK
  4. PARACETAMOL [Concomitant]
     Active Substance: ACETAMINOPHEN
     Dosage: UNK

REACTIONS (3)
  - Cardio-respiratory arrest [Recovering/Resolving]
  - Acute coronary syndrome [Recovering/Resolving]
  - Anaphylactic shock [Recovering/Resolving]

NARRATIVE: CASE EVENT DATE: 20181213
